FAERS Safety Report 15180346 (Version 1)
Quarter: 2018Q3

REPORT INFORMATION
  Report Type: Spontaneous
  Country: US (occurrence: US)
  Receive Date: 20180623
  Receipt Date: 20180623
  Transmission Date: 20181010
  Serious: Yes (Other)
  Sender: FDA-Public Use
  Company Number: None

PATIENT
  Age: 39 Year
  Sex: Female
  Weight: 75.6 kg

DRUGS (4)
  1. SUNDOWN NATURALS DISSOLVABLE B12 [Concomitant]
  2. WELLBUTRIN [Concomitant]
     Active Substance: BUPROPION HYDROCHLORIDE
  3. CREST 3D WHITE [Suspect]
     Active Substance: SODIUM FLUORIDE
     Indication: DENTAL CARIES
     Dosage: ?          QUANTITY:1 1/4^ PASTE;OTHER ROUTE:ON THE TEETH?
     Dates: start: 20180528, end: 20180621
  4. NATURE MADE MULTI?VITAMIN [Concomitant]

REACTIONS (9)
  - Lip dry [None]
  - Lip pain [None]
  - Gingival bleeding [None]
  - Gingival oedema [None]
  - Burning sensation [None]
  - Sensitivity of teeth [None]
  - Mouth ulceration [None]
  - Drug hypersensitivity [None]
  - Chemical burn [None]

NARRATIVE: CASE EVENT DATE: 20180622
